FAERS Safety Report 22142992 (Version 4)
Quarter: 2024Q2

REPORT INFORMATION
  Report Type: Report from Study
  Country: US (occurrence: US)
  Receive Date: 20230327
  Receipt Date: 20240515
  Transmission Date: 20240715
  Serious: Yes (Other)
  Sender: FDA-Public Use
  Company Number: US-TAKEDA-2023TUS031268

PATIENT
  Age: 33 Year
  Sex: Male

DRUGS (2)
  1. HEMOFIL [Suspect]
     Active Substance: ANTIHEMOPHILIC FACTOR HUMAN
     Indication: Product used for unknown indication
     Dosage: 3400 INTERNATIONAL UNIT
     Route: 050
  2. HEMOFIL [Suspect]
     Active Substance: ANTIHEMOPHILIC FACTOR HUMAN
     Dosage: 3400 INTERNATIONAL UNIT
     Route: 065

REACTIONS (3)
  - Haemarthrosis [Recovered/Resolved]
  - Limb injury [Unknown]
  - Neck injury [Unknown]

NARRATIVE: CASE EVENT DATE: 20230304
